FAERS Safety Report 8382628 (Version 13)
Quarter: 2012Q4

REPORT INFORMATION
  Report Type: 
  Country: CZ (occurrence: IL)
  Receive Date: 20120201
  Receipt Date: 20121003
  Transmission Date: 20130627
  Serious: Yes (Death, Life-Threatening, Hospitalization)
  Sender: FDA-Public Use
  Company Number: IL-BAYER-2011-123297

PATIENT
  Age: 65 Year
  Sex: Female
  Weight: 61 kg

DRUGS (13)
  1. SORAFENIB (RAF KINASE INHIBITOR) [Suspect]
     Indication: BREAST CANCER
     Dosage: 400 mg + 200 mg, QD
     Route: 048
     Dates: start: 20111205, end: 20111220
  2. UNSPECIFIED INGREDIENT [Suspect]
     Indication: BREAST CANCER
     Dosage: 1600 g x 2
     Route: 048
     Dates: start: 20111205, end: 20111219
  3. LIPITOR [Concomitant]
     Indication: HYPERLIPIDAEMIA
     Dosage: 20 mg, QD
     Route: 048
     Dates: start: 2001
  4. CARDILOC [Concomitant]
     Indication: HYPERTENSION
     Dosage: 25 mg, QD
     Route: 048
     Dates: start: 2004
  5. CARDILOC [Concomitant]
     Indication: HYPERTENSION
     Dosage: 25 mg, QD
     Route: 048
     Dates: start: 20111226, end: 20120108
  6. CARDILOC [Concomitant]
     Indication: HYPERTENSION
     Dosage: 1.25 mg, QD
     Route: 048
     Dates: start: 20111227
  7. TRITACE [Concomitant]
     Indication: HYPERTENSION
     Dosage: 1.75 mg, QD
     Route: 048
     Dates: start: 2004
  8. TRITACE [Concomitant]
     Indication: HYPERTENSION
     Dosage: 2.5 mg, UNK
     Route: 048
     Dates: start: 20111227, end: 20120108
  9. CALCIUM VIT D [Concomitant]
     Indication: SUPPLEMENTATION THERAPY
     Dosage: 600 + 25 mg, QD
     Route: 048
     Dates: start: 201111
  10. TOTAL PARENTERAL NUTRITION [Concomitant]
     Indication: MUCOSAL INFLAMMATION
     Dosage: 2500 ml, UNK
     Route: 042
     Dates: end: 201201
  11. DEXTROSE W/POTASSIUM CHLORIDE AND NACL [Concomitant]
     Dosage: 2.500 x1
     Dates: start: 20111226
  12. DEXTROSE W/POTASSIUM CHLORIDE AND NACL [Concomitant]
     Dosage: 2,500 x1
     Dates: start: 20111226
  13. GALENIC /GLUCOSE/SODIUM CL/POTASSIUM CL/ [Concomitant]
     Dosage: 2,500 x 1
     Dates: start: 20111226

REACTIONS (28)
  - Hepatic failure [Fatal]
  - Sepsis [Not Recovered/Not Resolved]
  - Diarrhoea [Recovered/Resolved]
  - Vomiting [Recovered/Resolved]
  - Mucosal infection [Not Recovered/Not Resolved]
  - Neutropenia [Recovered/Resolved]
  - White blood cell count decreased [Recovered/Resolved]
  - Pulmonary embolism [None]
  - Deep vein thrombosis [None]
  - Fatigue [Fatal]
  - Asthenia [Fatal]
  - Jaundice [Fatal]
  - Transaminases increased [Fatal]
  - Confusional state [Fatal]
  - Asterixis [Fatal]
  - Convulsion [Fatal]
  - Coma [Fatal]
  - White blood cell count increased [Not Recovered/Not Resolved]
  - Thrombocytopenia [Not Recovered/Not Resolved]
  - Tachycardia [Not Recovered/Not Resolved]
  - Haemoglobin decreased [Not Recovered/Not Resolved]
  - Haematemesis [Not Recovered/Not Resolved]
  - Renal impairment [Not Recovered/Not Resolved]
  - Oliguria [Not Recovered/Not Resolved]
  - Atrial fibrillation [Not Recovered/Not Resolved]
  - Respiratory disorder [Not Recovered/Not Resolved]
  - International normalised ratio increased [Not Recovered/Not Resolved]
  - Hypotension [Not Recovered/Not Resolved]
